FAERS Safety Report 9193591 (Version 1)
Quarter: 2013Q1

REPORT INFORMATION
  Report Type: Spontaneous
  Country: US (occurrence: US)
  Receive Date: 20130327
  Receipt Date: 20130327
  Transmission Date: 20140127
  Serious: Yes (Death)
  Sender: FDA-Public Use
  Company Number: US-ABBOTT-13P-163-1068081-00

PATIENT
  Age: 41 Year
  Sex: Male

DRUGS (6)
  1. RITONAVIR [Suspect]
     Indication: HIV INFECTION
     Dates: start: 1999
  2. TENOFOVIR [Suspect]
     Indication: HIV INFECTION
     Dates: start: 1999
  3. DIDANOSINE [Suspect]
     Indication: HIV INFECTION
     Dates: start: 1999
  4. ATAZANAVIR [Suspect]
     Indication: HIV INFECTION
     Dates: start: 1999
  5. CEFTRIAXONE [Suspect]
     Indication: URETHRITIS
  6. AZITHROMYCIN [Suspect]
     Indication: URETHRITIS

REACTIONS (1)
  - Vanishing bile duct syndrome [Fatal]
